FAERS Safety Report 8327855-2 (Version None)
Quarter: 2012Q2

REPORT INFORMATION
  Report Type: 
  Country: None (occurrence: None)
  Receive Date: 20120502
  Receipt Date: 20120424
  Transmission Date: 20120825
  Serious: Yes (Other)
  Sender: FDA-Public Use
  Company Number: US-ACCORD-013286

PATIENT
  Age: 63 Year
  Sex: Female
  Weight: 63.64 kg

DRUGS (4)
  1. LETROZOLE [Suspect]
     Indication: BREAST CANCER STAGE I
     Route: 048
     Dates: start: 20120421
  2. PREVACID [Concomitant]
  3. RANITIDINE [Concomitant]
  4. ARIMIDEX [Suspect]
     Indication: BREAST CANCER STAGE I
     Route: 048
     Dates: start: 20120301, end: 20120401

REACTIONS (5)
  - TINNITUS [None]
  - RHINORRHOEA [None]
  - ANXIETY [None]
  - ABDOMINAL DISCOMFORT [None]
  - GASTROOESOPHAGEAL REFLUX DISEASE [None]
